FAERS Safety Report 6227220-8 (Version None)
Quarter: 2009Q2

REPORT INFORMATION
  Report Type: 
  Country: None (occurrence: None)
  Receive Date: 20090612
  Receipt Date: 20090610
  Transmission Date: 20091009
  Serious: Yes (Hospitalization)
  Sender: FDA-Public Use
  Company Number: ZA-BRISTOL-MYERS SQUIBB COMPANY-14477186

PATIENT
  Age: 29 Year
  Sex: Male

DRUGS (3)
  1. ABATACEPT [Suspect]
     Indication: COLITIS ULCERATIVE
     Dosage: RESTARTED ON 16OCT08.
     Route: 042
     Dates: start: 20080721, end: 20090113
  2. ASACOL [Concomitant]
     Dates: start: 20081205, end: 20090123
  3. PREDNISONE [Concomitant]
     Dosage: ALSO TAKEN 15MG QD FROM 30APR09
     Dates: start: 20090224

REACTIONS (3)
  - GLOMERULONEPHRITIS [None]
  - HEPATIC FUNCTION ABNORMAL [None]
  - RENAL IMPAIRMENT [None]
